FAERS Safety Report 5927208-8 (Version None)
Quarter: 2008Q4

REPORT INFORMATION
  Report Type: 
  Country: None (occurrence: None)
  Receive Date: 20081022
  Receipt Date: 20081010
  Transmission Date: 20090506
  Serious: Yes (Other)
  Sender: FDA-Public Use
  Company Number: US-PFIZER INC-2008085874

PATIENT
  Sex: Female
  Weight: 75.909 kg

DRUGS (10)
  1. LYRICA [Suspect]
     Indication: FIBROMYALGIA
     Dates: start: 20080801
  2. PROMETHAZINE [Concomitant]
  3. MIRAPEX [Concomitant]
  4. SKELAXIN [Concomitant]
  5. LIDODERM [Concomitant]
     Route: 062
  6. KLOR-CON [Concomitant]
  7. HYDROCHLOROTHIAZIDE [Concomitant]
  8. IBUPROFEN TABLETS [Concomitant]
  9. FUROSEMIDE [Concomitant]
  10. IMITREX [Concomitant]

REACTIONS (6)
  - DIZZINESS [None]
  - DRUG INEFFECTIVE [None]
  - FLUID RETENTION [None]
  - JOINT SWELLING [None]
  - SURGERY [None]
  - WEIGHT INCREASED [None]
